FAERS Safety Report 8278010-6 (Version None)
Quarter: 2012Q2

REPORT INFORMATION
  Report Type: 
  Country: None (occurrence: None)
  Receive Date: 20120412
  Receipt Date: 20120404
  Transmission Date: 20120825
  Serious: Yes (Hospitalization)
  Sender: FDA-Public Use
  Company Number: TR-COVIDIEN/TYCO HEALTHCARE/MALLINCKRODT-T201201400

PATIENT
  Sex: Female

DRUGS (1)
  1. OPTIRAY 160 [Suspect]
     Indication: COMPUTERISED TOMOGRAM
     Dosage: 80 ML, SINGLE
     Route: 042
     Dates: start: 20120306, end: 20120306

REACTIONS (2)
  - OEDEMA PERIPHERAL [None]
  - PHARYNGEAL OEDEMA [None]
